FAERS Safety Report 10576262 (Version 2)
Quarter: 2018Q4

REPORT INFORMATION
  Report Type: Spontaneous
  Country: US (occurrence: US)
  Receive Date: 20141111
  Receipt Date: 20181216
  Transmission Date: 20190204
  Serious: Yes (Death)
  Sender: FDA-Public Use
  Company Number: US-MALLINCKRODT-T201402238

PATIENT
  Sex: Female

DRUGS (2)
  1. CALDOLOR [Suspect]
     Active Substance: IBUPROFEN
     Indication: PRODUCT USED FOR UNKNOWN INDICATION
     Dosage: SCHEDULED DOSE FOR 24 HOURS
     Route: 065
  2. OFIRMEV [Suspect]
     Active Substance: ACETAMINOPHEN
     Indication: HYSTERECTOMY
     Dosage: SCHEDULED DOSE FOR 24 HOURS
     Route: 065

REACTIONS (1)
  - Acute hepatic failure [Fatal]

NARRATIVE: CASE EVENT DATE: 2013
